FAERS Safety Report 5543024-3 (Version None)
Quarter: 2007Q4

REPORT INFORMATION
  Report Type: 
  Country: None (occurrence: None)
  Receive Date: 20071210
  Receipt Date: 20071128
  Transmission Date: 20080405
  Serious: Yes (Other)
  Sender: FDA-Public Use
  Company Number: US-PFIZER INC-2007101687

PATIENT
  Sex: Male

DRUGS (15)
  1. CHANTIX [Suspect]
     Indication: SMOKING CESSATION THERAPY
     Route: 048
  2. LUMIGAN [Concomitant]
  3. TIMOPTIC [Concomitant]
  4. LOTEMAX [Concomitant]
  5. ERYTHROMYCIN [Concomitant]
  6. NIFEDIPINE [Concomitant]
  7. AVAPRO [Concomitant]
  8. TRIAMTERENE [Concomitant]
  9. KLONOPIN [Concomitant]
  10. ADDERALL 10 [Concomitant]
  11. OXYCONTIN [Concomitant]
  12. VOLTAREN [Concomitant]
  13. NEXIUM [Concomitant]
  14. ALL OTHER THERAPEUTIC PRODUCTS [Concomitant]
  15. EFFEXOR XR [Concomitant]

REACTIONS (2)
  - DRUG INEFFECTIVE [None]
  - SURGERY [None]
